FAERS Safety Report 9710433 (Version 2)
Quarter: 2013Q4

REPORT INFORMATION
  Report Type: Spontaneous
  Country: US (occurrence: US)
  Receive Date: 20131126
  Receipt Date: 20131126
  Transmission Date: 20140711
  Serious: No
  Sender: FDA-Public Use
  Company Number: US-BRISTOL-MYERS SQUIBB COMPANY-18984559

PATIENT
  Age: 41 Year
  Sex: Female
  Weight: 108.39 kg

DRUGS (2)
  1. BYDUREON [Suspect]
     Indication: TYPE 2 DIABETES MELLITUS
     Route: 058
  2. METFORMIN [Concomitant]

REACTIONS (3)
  - Injection site nodule [Not Recovered/Not Resolved]
  - Injection site pruritus [Unknown]
  - Injection site erythema [Unknown]
